FAERS Safety Report 4515031-0 (Version None)
Quarter: 2004Q4

REPORT INFORMATION
  Report Type: 
  Country: None (occurrence: None)
  Receive Date: 20041201
  Receipt Date: 20040908
  Transmission Date: 20050328
  Serious: Yes (Life-Threatening, Hospitalization)
  Sender: FDA-Public Use
  Company Number: IE-BRISTOL-MYERS SQUIBB COMPANY-12697504

PATIENT
  Age: 14 Year
  Sex: Female
  Weight: 54 kg

DRUGS (6)
  1. PARAPLATIN [Suspect]
     Indication: GLIOMA
     Route: 042
     Dates: start: 20040408
  2. VINCRISTINE [Concomitant]
     Indication: GLIOMA
     Dosage: 3 WEEKLY FOR 10 WKS, THEN 4 WEEKLY
     Route: 042
     Dates: start: 20040408
  3. METOCLOPRAMIDE [Concomitant]
     Indication: NAUSEA
     Dosage: ORAL/IV
     Dates: start: 20040408
  4. ONDANSETRON [Concomitant]
     Indication: NAUSEA
     Dosage: IV/ORAL
     Dates: start: 20040408
  5. CODEINE [Concomitant]
     Indication: PAIN
     Route: 048
     Dates: start: 20040408
  6. LACTULOSE [Concomitant]
     Indication: LAXATIVE SUPPORTIVE CARE
     Route: 048
     Dates: start: 20040408

REACTIONS (4)
  - BLOOD POTASSIUM DECREASED [None]
  - COMA [None]
  - DEPRESSED LEVEL OF CONSCIOUSNESS [None]
  - INAPPROPRIATE ANTIDIURETIC HORMONE SECRETION [None]
